FAERS Safety Report 8211177-4 (Version None)
Quarter: 2012Q1

REPORT INFORMATION
  Report Type: 
  Country: None (occurrence: None)
  Receive Date: 20120315
  Receipt Date: 20120308
  Transmission Date: 20120608
  Serious: Yes (Other)
  Sender: FDA-Public Use
  Company Number: US-UCBSA-052973

PATIENT
  Age: 61 Year
  Sex: Female
  Weight: 78.01 kg

DRUGS (10)
  1. SULFASALIZINE [Concomitant]
     Indication: ANKYLOSING SPONDYLITIS
     Route: 048
     Dates: start: 20100301
  2. IBUPROFEN [Concomitant]
     Indication: ANKYLOSING SPONDYLITIS
     Route: 048
     Dates: start: 20100301
  3. CYMBALTA [Concomitant]
     Indication: ANKYLOSING SPONDYLITIS
     Route: 048
     Dates: start: 20070101
  4. ROPINIROLE [Concomitant]
     Indication: RESTLESS LEGS SYNDROME
     Route: 048
     Dates: start: 20110201
  5. LEVOTHYROXINE SODIUM [Concomitant]
     Indication: HYPOTHYROIDISM
     Route: 048
     Dates: start: 19920101
  6. ZONISAMIDE [Concomitant]
     Indication: CONVULSION
     Dosage: 1 IN AM , 2 IN PM
     Route: 048
     Dates: start: 20110101
  7. VIMPAT [Suspect]
     Indication: CONVULSION
     Route: 048
     Dates: start: 20120220
  8. MELATONIN [Concomitant]
     Indication: CIRCADIAN RHYTHM SLEEP DISORDER
     Route: 048
     Dates: start: 20100301
  9. LEVETIRACETAM [Suspect]
     Indication: CONVULSION
     Dosage: IN THE MORNING :1000 MG, AT NIGHT :1500 MG
     Route: 048
     Dates: start: 20110101
  10. VIVELLE-DOT [Concomitant]
     Indication: HOT FLUSH
     Dosage: ROUTE: PATCH
     Dates: start: 20110301

REACTIONS (6)
  - CONVULSION [None]
  - VOMITING [None]
  - NAUSEA [None]
  - DIARRHOEA [None]
  - DIZZINESS [None]
  - HYPOTENSION [None]
